FAERS Safety Report 8163836 (Version 2)
Quarter: 2012Q4

REPORT INFORMATION
  Report Type: 
  Country: US (occurrence: US)
  Receive Date: 20110930
  Receipt Date: 20120927
  Transmission Date: 20130627
  Serious: Yes (Hospitalization)
  Sender: FDA-Public Use
  Company Number: US-US-EMD SERONO, INC.-7085181

PATIENT
  Age: 50 None
  Sex: Female
  Weight: 66 kg

DRUGS (7)
  1. REBIF [Suspect]
     Indication: MULTIPLE SCLEROSIS
     Route: 058
     Dates: start: 20080527, end: 201107
  2. UNSPECIFIED MEDICATION [Concomitant]
     Indication: DEPRESSION
     Dates: end: 201106
  3. UNSPECIFIED MEDICATION [Concomitant]
     Indication: DEPRESSION
     Dates: end: 201106
  4. TIZANIDINE [Concomitant]
     Indication: MUSCLE SPASMS
     Dosage: 3 at bedtime
     Dates: start: 2008
  5. VALIUM [Concomitant]
     Indication: MUSCLE SPASMS
     Dosage: every eight hours
     Dates: start: 20120101
  6. AMPYRA [Concomitant]
     Indication: GAIT DISTURBANCE
     Dates: start: 20120103
  7. ARICEPT [Concomitant]
     Indication: MEMORY IMPAIRMENT
     Dates: start: 20091105

REACTIONS (3)
  - Suicidal ideation [Recovering/Resolving]
  - Anger [Recovering/Resolving]
  - Depressed mood [Recovering/Resolving]
